FAERS Safety Report 5852342-0 (Version None)
Quarter: 2008Q3

REPORT INFORMATION
  Report Type: 
  Country: None (occurrence: None)
  Receive Date: 20080821
  Receipt Date: 20080812
  Transmission Date: 20090109
  Serious: Yes (Other)
  Sender: FDA-Public Use
  Company Number: US-ABBOTT-08P-163-0470373-00

PATIENT
  Sex: Female
  Weight: 81.72 kg

DRUGS (4)
  1. HUMIRA [Suspect]
     Indication: POLYARTHRITIS
     Route: 058
     Dates: start: 20040101
  2. METHOTREXATE SODIUM [Concomitant]
     Indication: POLYARTHRITIS
     Route: 048
     Dates: start: 19980101
  3. PREDNISONE TAB [Concomitant]
     Indication: POLYARTHRITIS
     Route: 048
     Dates: start: 19980101
  4. CELECOXIB [Concomitant]
     Indication: POLYARTHRITIS
     Route: 048
     Dates: start: 19960101

REACTIONS (4)
  - MUSCLE INJURY [None]
  - MUSCULOSKELETAL PAIN [None]
  - ROTATOR CUFF SYNDROME [None]
  - SINUS OPERATION [None]
